FAERS Safety Report 6813240-9 (Version None)
Quarter: 2010Q3

REPORT INFORMATION
  Report Type: 
  Country: None (occurrence: None)
  Receive Date: 20100701
  Receipt Date: 20100623
  Transmission Date: 20110219
  Serious: Yes (Hospitalization, Other)
  Sender: FDA-Public Use
  Company Number: JP-PFIZER INC-2010078011

PATIENT
  Age: 34 Year
  Sex: Female
  Weight: 66 kg

DRUGS (2)
  1. SUNITINIB MALATE [Suspect]
     Indication: GASTROINTESTINAL STROMAL TUMOUR
     Dosage: 50 MG, 1X/DAY
     Route: 048
     Dates: start: 20080813
  2. ADALAT [Concomitant]
     Dosage: UNK
     Dates: start: 20080903

REACTIONS (2)
  - INTRA-ABDOMINAL HAEMORRHAGE [None]
  - WHITE BLOOD CELL COUNT DECREASED [None]
